FAERS Safety Report 5331259-4 (Version None)
Quarter: 2007Q2

REPORT INFORMATION
  Report Type: 
  Country: None (occurrence: None)
  Receive Date: 20070301
  Receipt Date: 20060424
  Transmission Date: 20071010
  Serious: No
  Sender: FDA-Public Use
  Company Number: 2342

PATIENT
  Age: 18 Year
  Sex: Female
  Weight: 65.318 kg

DRUGS (2)
  1. ISOTRETINOIN [Suspect]
     Indication: ACNE
     Dosage: 40 MG BID
     Dates: start: 20051015, end: 20060208
  2. ORTHO TRI-CYCLEN [Concomitant]

REACTIONS (1)
  - BLOOD CHOLESTEROL INCREASED [None]
